FAERS Safety Report 9685075 (Version 3)
Quarter: 2013Q4

REPORT INFORMATION
  Report Type: Spontaneous
  Country: DE (occurrence: DE)
  Receive Date: 20131113
  Receipt Date: 20131209
  Transmission Date: 20140711
  Serious: Yes (Life-Threatening, Hospitalization)
  Sender: FDA-Public Use
  Company Number: DE-BRISTOL-MYERS SQUIBB COMPANY-19767219

PATIENT
  Age: 83 Year
  Sex: Male

DRUGS (6)
  1. ELIQUIS [Suspect]
     Indication: CEREBROVASCULAR ACCIDENT PROPHYLAXIS
     Route: 065
     Dates: start: 20130824, end: 20131007
  2. ELIQUIS [Suspect]
     Indication: THROMBOSIS PROPHYLAXIS
     Route: 065
     Dates: start: 20130824, end: 20131007
  3. ELIQUIS [Suspect]
     Indication: PULMONARY EMBOLISM
     Route: 065
     Dates: start: 20130824, end: 20131007
  4. BISOPROLOL [Concomitant]
  5. ENALAPRIL [Concomitant]
  6. MADOPAR [Concomitant]

REACTIONS (2)
  - Mucosal haemorrhage [Recovered/Resolved]
  - Thrombocytopenia [Recovered/Resolved]
